FAERS Safety Report 4710668-8 (Version None)
Quarter: 2005Q3

REPORT INFORMATION
  Report Type: 
  Country: None (occurrence: None)
  Receive Date: 20050711
  Receipt Date: 20050705
  Transmission Date: 20060218
  Serious: Yes (Hospitalization)
  Sender: FDA-Public Use
  Company Number: US-MERCK-0507USA00418

PATIENT
  Age: 73 Year
  Sex: Female

DRUGS (3)
  1. FOSAMAX [Suspect]
     Indication: PROPHYLAXIS
     Route: 048
     Dates: start: 20000101
  2. POTASSIUM (UNSPECIFIED) [Concomitant]
     Route: 065
  3. THEOPHYLLINE [Concomitant]
     Route: 065

REACTIONS (3)
  - FOREIGN BODY TRAUMA [None]
  - PNEUMONIA [None]
  - SENSATION OF FOREIGN BODY [None]
